FAERS Safety Report 18334280 (Version 2)
Quarter: 2020Q4

REPORT INFORMATION
  Report Type: Spontaneous
  Country: DE (occurrence: DE)
  Receive Date: 20201001
  Receipt Date: 20201015
  Transmission Date: 20210113
  Serious: Yes (Hospitalization, Other)
  Sender: FDA-Public Use
  Company Number: DE-ASTELLAS-2020US033497

PATIENT
  Age: 84 Year
  Sex: Female
  Weight: 58 kg

DRUGS (15)
  1. REGADENOSON [Suspect]
     Active Substance: REGADENOSON
     Indication: CARDIAC PHARMACOLOGIC STRESS TEST
     Dosage: 400 ?G, SINGLE (ONCE)
     Route: 042
     Dates: start: 20200910, end: 20200910
  2. REGADENOSON [Suspect]
     Active Substance: REGADENOSON
     Indication: CARDIAC PHARMACOLOGIC STRESS TEST
     Dosage: 400 ?G, SINGLE (ONCE)
     Route: 042
     Dates: start: 20200910, end: 20200910
  3. MYOVIEW [TETROFOSMIN;ZINC CHLORIDE] [Suspect]
     Active Substance: TETROFOSMIN\ZINC CHLORIDE
     Indication: SCAN MYOCARDIAL PERFUSION
     Dosage: 247 MBQ, SINGLE (ONCE)
     Route: 042
     Dates: start: 20200910, end: 20200910
  4. MYOVIEW [TETROFOSMIN;ZINC CHLORIDE] [Suspect]
     Active Substance: TETROFOSMIN\ZINC CHLORIDE
     Indication: CORONARY ARTERY DISEASE
  5. TECHNETIUM TC 99M [Concomitant]
     Active Substance: TECHNETIUM TC-99M
     Indication: PRODUCT USED FOR UNKNOWN INDICATION
     Dosage: UNK UNK, UNKNOWN FREQ.
     Route: 065
     Dates: start: 20200910, end: 20200910
  6. REGADENOSON [Suspect]
     Active Substance: REGADENOSON
     Indication: CORONARY ARTERY DISEASE
  7. APIXABAN [Concomitant]
     Active Substance: APIXABAN
     Indication: PRODUCT USED FOR UNKNOWN INDICATION
     Dosage: UNK UNK, UNKNOWN FREQ.
     Route: 065
  8. TORASEMID [Concomitant]
     Active Substance: TORSEMIDE
     Indication: PRODUCT USED FOR UNKNOWN INDICATION
     Route: 065
  9. BISOPROLOL [Concomitant]
     Active Substance: BISOPROLOL
     Indication: PRODUCT USED FOR UNKNOWN INDICATION
     Dosage: UNK UNK, UNKNOWN FREQ.
     Route: 065
  10. NACL [Concomitant]
     Active Substance: SODIUM CHLORIDE
     Indication: PRODUCT USED FOR UNKNOWN INDICATION
     Route: 065
     Dates: start: 20200910, end: 20200910
  11. REGADENOSON [Suspect]
     Active Substance: REGADENOSON
     Indication: CARDIAC PHARMACOLOGIC STRESS TEST
     Dosage: 400 ?G, SINGLE (ONCE)
     Route: 042
     Dates: start: 20200910, end: 20200910
  12. REGADENOSON [Suspect]
     Active Substance: REGADENOSON
     Indication: CARDIAC PHARMACOLOGIC STRESS TEST
     Dosage: 400 ?G, SINGLE (ONCE)
     Route: 042
     Dates: start: 20200910, end: 20200910
  13. REGADENOSON [Suspect]
     Active Substance: REGADENOSON
     Indication: CORONARY ARTERY DISEASE
  14. REGADENOSON [Suspect]
     Active Substance: REGADENOSON
     Indication: CORONARY ARTERY DISEASE
  15. REGADENOSON [Suspect]
     Active Substance: REGADENOSON
     Indication: CORONARY ARTERY DISEASE

REACTIONS (5)
  - Dizziness [Recovered/Resolved]
  - Dyspnoea [Recovered/Resolved]
  - Dysarthria [Recovered/Resolved]
  - Limb discomfort [Recovered/Resolved]
  - Chest discomfort [Recovered/Resolved]

NARRATIVE: CASE EVENT DATE: 20200910
